FAERS Safety Report 4473405-0 (Version None)
Quarter: 2004Q4

REPORT INFORMATION
  Report Type: 
  Country: None (occurrence: None)
  Receive Date: 20040923
  Receipt Date: 20040719
  Transmission Date: 20050328
  Serious: Yes (Other)
  Sender: FDA-Public Use
  Company Number: PERC20040037

PATIENT
  Age: 28 Year
  Sex: Male
  Weight: 106.5953 kg

DRUGS (1)
  1. PERCOCET [Suspect]
     Indication: POST PROCEDURAL PAIN
     Dates: start: 20030801

REACTIONS (3)
  - DRUG ABUSER [None]
  - DRUG DEPENDENCE [None]
  - DRUG WITHDRAWAL SYNDROME [None]
